FAERS Safety Report 4474705-0 (Version None)
Quarter: 2004Q4

REPORT INFORMATION
  Report Type: 
  Country: None (occurrence: None)
  Receive Date: 20041012
  Receipt Date: 20040929
  Transmission Date: 20050328
  Serious: Yes (Hospitalization)
  Sender: FDA-Public Use
  Company Number: 200412760GDS

PATIENT
  Age: 83 Year
  Sex: Male

DRUGS (3)
  1. BUFFERIN 81 MG TABLET (ACETYLSALICYLIC ACID) [Suspect]
     Indication: ANTIPLATELET THERAPY
     Dosage: ORAL
     Route: 048
     Dates: start: 20030410
  2. ANTIPLATELET THERAPY [Concomitant]
  3. OTHER DRUGS [Concomitant]

REACTIONS (8)
  - HAEMOGLOBIN DECREASED [None]
  - HAEMORRHAGE [None]
  - JAW FRACTURE [None]
  - LARYNGEAL OEDEMA [None]
  - LOSS OF CONSCIOUSNESS [None]
  - OBSTRUCTIVE AIRWAYS DISORDER [None]
  - RESPIRATORY DISORDER [None]
  - STRIDOR [None]
